FAERS Safety Report 17974504 (Version 1)
Quarter: 2020Q3

REPORT INFORMATION
  Report Type: Spontaneous
  Country: US (occurrence: US)
  Receive Date: 20200702
  Receipt Date: 20200702
  Transmission Date: 20201103
  Serious: Yes (Other)
  Sender: FDA-Public Use
  Company Number: None

PATIENT
  Age: 77 Year
  Sex: Female
  Weight: 67.8 kg

DRUGS (1)
  1. REMDESIVIR. [Suspect]
     Active Substance: REMDESIVIR
     Indication: COVID-19 PNEUMONIA
     Route: 042
     Dates: start: 20200628, end: 20200702

REACTIONS (9)
  - Liver function test increased [None]
  - Aspartate aminotransferase increased [None]
  - Alanine aminotransferase increased [None]
  - Blood creatinine increased [None]
  - Glomerular filtration rate decreased [None]
  - Cardiac arrest [None]
  - Transaminases increased [None]
  - International normalised ratio increased [None]
  - Acute kidney injury [None]

NARRATIVE: CASE EVENT DATE: 20200702
